FAERS Safety Report 13776423 (Version 4)
Quarter: 2020Q1

REPORT INFORMATION
  Report Type: Report from Study
  Country: DE (occurrence: DE)
  Receive Date: 20170720
  Receipt Date: 20200316
  Transmission Date: 20200409
  Serious: Yes (Hospitalization)
  Sender: FDA-Public Use
  Company Number: DE-GILEAD-2017-0275563

PATIENT
  Age: 48 Year
  Sex: Male
  Weight: 140.5 kg

DRUGS (13)
  1. HUMALOG [Concomitant]
     Active Substance: INSULIN LISPRO
     Indication: TYPE 2 DIABETES MELLITUS
     Dosage: UNK
     Route: 058
     Dates: start: 2012
  2. METFORMIN [Concomitant]
     Active Substance: METFORMIN HYDROCHLORIDE
     Indication: DIABETES MELLITUS
     Dosage: UNK
     Route: 048
     Dates: start: 20170529, end: 20170808
  3. PLACEBO [Suspect]
     Active Substance: UNSPECIFIED INGREDIENT
     Indication: HIV INFECTION
     Dosage: 1 DF, QD
     Route: 048
     Dates: start: 20160706, end: 20190702
  4. MAALOXAN                           /00082501/ [Concomitant]
     Indication: ABDOMINAL PAIN UPPER
     Dosage: UNK
     Route: 048
     Dates: start: 20161220
  5. ATORVASTATIN [Concomitant]
     Active Substance: ATORVASTATIN
     Indication: DISEASE RISK FACTOR
     Dosage: 40 MG, UNK
     Route: 048
     Dates: start: 20170529
  6. EMTRICITABINE/TENOFOVIR ALAFENAMIDE [Suspect]
     Active Substance: EMTRICITABINE\TENOFOVIR
     Indication: HIV INFECTION
     Dosage: 1 DF, QD
     Route: 048
     Dates: start: 20160706, end: 20190702
  7. DOLUTEGRAVIR [Suspect]
     Active Substance: DOLUTEGRAVIR
     Indication: HIV INFECTION
     Dosage: 1 DF, QD
     Route: 048
     Dates: start: 20160706, end: 20190702
  8. VOBAMYK [Concomitant]
     Indication: FOLLICULITIS
     Dosage: UNK
     Route: 061
     Dates: start: 20170315
  9. OCTENISAN                          /07129001/ [Concomitant]
     Active Substance: ALLANTOIN\OCTENIDINE
     Indication: FOLLICULITIS
     Dosage: UNK
     Route: 061
     Dates: start: 20170315, end: 20171101
  10. VELMETIA [Concomitant]
     Active Substance: METFORMIN\SITAGLIPTIN
     Indication: TYPE 2 DIABETES MELLITUS
     Dosage: UNK
     Route: 048
     Dates: start: 2012, end: 20170808
  11. BICTEGRAVIR W/EMTRICITABINE/TENOFOVIR ALAFENAMIDE [Suspect]
     Active Substance: BICTEGRAVIR\EMTRICITABINE\TENOFOVIR ALAFENAMIDE
     Indication: HIV INFECTION
     Route: 048
     Dates: start: 20190703
  12. CANDIO HERMAL [Concomitant]
     Indication: SKIN CANDIDA
     Dosage: UNK
     Route: 061
     Dates: start: 20161025
  13. RAMIPRIL. [Concomitant]
     Active Substance: RAMIPRIL
     Indication: HYPERTENSION
     Dosage: 5 MG, UNK
     Route: 048
     Dates: start: 20170529

REACTIONS (1)
  - Deep vein thrombosis [Recovered/Resolved]

NARRATIVE: CASE EVENT DATE: 20170529
